FAERS Safety Report 5517885-8 (Version None)
Quarter: 2007Q4

REPORT INFORMATION
  Report Type: 
  Country: None (occurrence: None)
  Receive Date: 20071113
  Receipt Date: 20071105
  Transmission Date: 20080405
  Serious: Yes (Hospitalization, Other)
  Sender: FDA-Public Use
  Company Number: 2007US002751

PATIENT
  Age: 48 Year
  Sex: Male

DRUGS (8)
  1. PROGRAF [Suspect]
     Indication: RENAL TRANSPLANT
     Dosage: 10 MG, BID, ORAL
     Route: 048
     Dates: start: 20051105
  2. MYCOPHENOLATE MOFETIL [Suspect]
     Indication: RENAL TRANSPLANT
     Dosage: 1000 MG, BID, ORAL
     Route: 048
     Dates: start: 20051105
  3. PREDNISONE TAB [Suspect]
     Indication: RENAL TRANSPLANT
     Dosage: 25 MG, UID/QD, ORAL
     Route: 048
     Dates: start: 20051105
  4. ACYCLOVIR [Concomitant]
  5. BACTRIM [Concomitant]
  6. ZANTAC 150 [Concomitant]
  7. COLACE (DOCUSATE SODIUM) [Concomitant]
  8. NYSTATIN [Concomitant]

REACTIONS (2)
  - RENAL HAEMATOMA [None]
  - URINARY RETENTION [None]
